FAERS Safety Report 20370125 (Version 5)
Quarter: 2022Q1

REPORT INFORMATION
  Report Type: Spontaneous
  Country: US (occurrence: US)
  Receive Date: 20220124
  Receipt Date: 20220324
  Transmission Date: 20220423
  Serious: Yes (Hospitalization)
  Sender: FDA-Public Use
  Company Number: US-TEVA-2022-US-2000784

PATIENT
  Age: 64 Year
  Sex: Female

DRUGS (4)
  1. TREPROSTINIL [Suspect]
     Active Substance: TREPROSTINIL
     Indication: Pulmonary arterial hypertension
     Dosage: 15.5 NG/KG/MIN
     Route: 042
     Dates: start: 20211216
  2. TREPROSTINIL [Suspect]
     Active Substance: TREPROSTINIL
     Dosage: 14NG/KG/MIN, 15.5NKM
     Route: 042
     Dates: start: 20211217
  3. TREPROSTINIL [Suspect]
     Active Substance: TREPROSTINIL
     Dosage: 15.5NG/KG/MIN
     Route: 042
     Dates: start: 202104
  4. TREPROSTINIL [Suspect]
     Active Substance: TREPROSTINIL
     Dosage: 19.25 NG/KG/MIN AND 36 ML/24HR PUMP RATE
     Route: 042
     Dates: start: 202201

REACTIONS (8)
  - COVID-19 [Unknown]
  - Nausea [Unknown]
  - Abdominal pain upper [Unknown]
  - Headache [Unknown]
  - Dyspepsia [Unknown]
  - Catheter site vesicles [Unknown]
  - Catheter site irritation [Unknown]
  - Gastrointestinal motility disorder [Unknown]

NARRATIVE: CASE EVENT DATE: 20220101
